FAERS Safety Report 5097007-0 (Version None)
Quarter: 2006Q3

REPORT INFORMATION
  Report Type: 
  Country: None (occurrence: None)
  Receive Date: 20060906
  Receipt Date: 20060831
  Transmission Date: 20061208
  Serious: Yes (Life-Threatening)
  Sender: FDA-Public Use
  Company Number: PHBS2006PH13273

PATIENT

DRUGS (1)
  1. TEGRETOL [Suspect]
     Dosage: 3 TABLETS

REACTIONS (2)
  - COMA [None]
  - WRONG DRUG ADMINISTERED [None]
